FAERS Safety Report 4552323-3 (Version None)
Quarter: 2005Q1

REPORT INFORMATION
  Report Type: 
  Country: None (occurrence: None)
  Receive Date: 20050114
  Receipt Date: 20040128
  Transmission Date: 20050727
  Serious: Yes (Hospitalization)
  Sender: FDA-Public Use
  Company Number: US-GLAXOSMITHKLINE-A0495357A

PATIENT
  Sex: Female

DRUGS (5)
  1. IMITREX [Suspect]
     Indication: MIGRAINE
     Dosage: 6MG TWICE PER DAY
     Route: 058
  2. VERAPAMIL [Concomitant]
  3. CARDURA [Concomitant]
  4. NORCO [Concomitant]
  5. PREMARIN [Concomitant]

REACTIONS (1)
  - CARDIOVASCULAR DISORDER [None]
